FAERS Safety Report 20205113 (Version 1)
Quarter: 2021Q4

REPORT INFORMATION
  Report Type: Spontaneous
  Country: US (occurrence: None)
  Receive Date: 20211220
  Receipt Date: 20211220
  Transmission Date: 20220303
  Serious: Yes (Other)
  Sender: FDA-Public Use
  Company Number: US-MDD US Operations-SUP202106-001125

PATIENT
  Sex: Male

DRUGS (5)
  1. OXTELLAR XR [Suspect]
     Active Substance: OXCARBAZEPINE
     Indication: Seizure
     Dosage: NOT PROVIDED
     Dates: start: 201512, end: 201608
  2. CARBATROL [Concomitant]
     Active Substance: CARBAMAZEPINE
     Indication: Seizure
     Dosage: NOT PROVIDED
  3. GRISEOFULVIN [Concomitant]
     Active Substance: GRISEOFULVIN
     Dosage: NOT PROVIDED
  4. MELATONIN [Concomitant]
     Active Substance: MELATONIN
     Indication: Sleep disorder
     Dosage: NOT PROVIDED
  5. Clonazipine [Concomitant]
     Indication: Generalised tonic-clonic seizure
     Dosage: NOT PROVIDED

REACTIONS (5)
  - Suicidal ideation [Recovered/Resolved]
  - Obsessive-compulsive symptom [Recovered/Resolved]
  - Anxiety [Recovered/Resolved]
  - Depression [Recovered/Resolved]
  - Weight decreased [Recovered/Resolved]

NARRATIVE: CASE EVENT DATE: 20160801
